FAERS Safety Report 8130779 (Version 2)
Quarter: 2013Q1

REPORT INFORMATION
  Report Type: Spontaneous
  Country: BR (occurrence: BR)
  Receive Date: 20110912
  Receipt Date: 20130319
  Transmission Date: 20140127
  Serious: Yes (Other)
  Sender: FDA-Public Use
  Company Number: BR-ROCHE-785226

PATIENT
  Sex: Female
  Weight: 52 kg

DRUGS (8)
  1. RIVOTRIL [Suspect]
     Indication: PRODUCT USED FOR UNKNOWN INDICATION
     Route: 048
  2. LEXOTAN [Suspect]
     Indication: PRODUCT USED FOR UNKNOWN INDICATION
     Route: 065
  3. LEXOTAN [Suspect]
     Route: 065
  4. EPOETIN ALFA [Concomitant]
     Indication: ANAEMIA
     Dosage: DRUG NAME REPORTED AS HEMAX ERITRON, DOSE: 4000UI
     Route: 065
  5. DIOVAN HCT [Concomitant]
     Indication: HYPERTENSION
     Route: 065
  6. METHYLDOPA [Concomitant]
     Indication: BLOOD PRESSURE
  7. VALSARTAN [Concomitant]
     Indication: BLOOD PRESSURE
  8. VITAMIN A [Concomitant]

REACTIONS (8)
  - Peripheral ischaemia [Not Recovered/Not Resolved]
  - Sensation of heaviness [Not Recovered/Not Resolved]
  - Pain in extremity [Not Recovered/Not Resolved]
  - Gait disturbance [Not Recovered/Not Resolved]
  - Renal disorder [Not Recovered/Not Resolved]
  - Anaemia [Unknown]
  - Hepatitis [Unknown]
  - Pain in extremity [Not Recovered/Not Resolved]
